FAERS Safety Report 18201833 (Version 1)
Quarter: 2020Q3

REPORT INFORMATION
  Report Type: Spontaneous
  Country: US (occurrence: US)
  Receive Date: 20200827
  Receipt Date: 20200827
  Transmission Date: 20201103
  Serious: No
  Sender: FDA-Public Use
  Company Number: US-AMGEN-USASP2020138738

PATIENT
  Age: 57 Year
  Sex: Male

DRUGS (5)
  1. FENOBIBRATE [Concomitant]
     Active Substance: FENOFIBRATE
     Dosage: UNK
  2. PROCTOZONE HC [Concomitant]
     Active Substance: HYDROCORTISONE
     Dosage: UNK
  3. NYSTOP [Concomitant]
     Active Substance: NYSTATIN
     Dosage: UNK
  4. SORILUX [Concomitant]
     Active Substance: CALCIPOTRIENE
     Dosage: UNK
  5. OTEZLA [Suspect]
     Active Substance: APREMILAST
     Indication: PSORIASIS
     Dosage: 30 MILLIGRAM, BID
     Route: 048
     Dates: start: 20190813

REACTIONS (1)
  - Macule [Not Recovered/Not Resolved]

NARRATIVE: CASE EVENT DATE: 202007
